FAERS Safety Report 7095397-0 (Version None)
Quarter: 2010Q4

REPORT INFORMATION
  Report Type: 
  Country: None (occurrence: None)
  Receive Date: 20101111
  Receipt Date: 20101027
  Transmission Date: 20110411
  Serious: Yes (Death)
  Sender: FDA-Public Use
  Company Number: US-AMGEN-USASP2010001687

PATIENT

DRUGS (11)
  1. NEUPOGEN [Suspect]
     Indication: NEUTROPENIA
     Dosage: 4.05 A?G/KG, UNK
     Route: 058
     Dates: start: 19910314
  2. ADRIAMYCIN PFS [Concomitant]
     Dosage: UNK
     Dates: start: 19910222
  3. BLEOMYCIN SULFATE [Concomitant]
     Dosage: UNK
     Dates: start: 19910222
  4. CYTOXAN [Concomitant]
     Dosage: UNK
     Dates: start: 19910222
  5. DECADRON [Concomitant]
     Dosage: UNK
     Dates: start: 19910222
  6. AMFETAMINE [Concomitant]
     Dosage: UNK
     Dates: start: 19910222
  7. ONCOVIN [Concomitant]
     Dosage: UNK
     Dates: start: 19910222
  8. COMPAZINE [Concomitant]
     Dosage: UNK
     Dates: start: 19910221
  9. SLOW-K [Concomitant]
     Dosage: UNK
     Dates: start: 19910412
  10. ZANTAC                             /00550801/ [Concomitant]
     Dosage: UNK
     Dates: start: 19910218
  11. RESTORIL                           /00393701/ [Concomitant]
     Dosage: UNK

REACTIONS (2)
  - BLOOD LACTATE DEHYDROGENASE INCREASED [None]
  - MALIGNANT NEOPLASM PROGRESSION [None]
